FAERS Safety Report 10979380 (Version 2)
Quarter: 2015Q2

REPORT INFORMATION
  Report Type: Spontaneous
  Country: CN (occurrence: CN)
  Receive Date: 20150402
  Receipt Date: 20150519
  Transmission Date: 20150821
  Serious: Yes (Other)
  Sender: FDA-Public Use
  Company Number: CN-ABBVIE-15P-035-1368784-00

PATIENT
  Age: 42 Year
  Sex: Male

DRUGS (6)
  1. CARBAMAZEPINE. [Suspect]
     Active Substance: CARBAMAZEPINE
     Indication: PRODUCT USED FOR UNKNOWN INDICATION
     Route: 065
     Dates: start: 201406
  2. NIMODIPINE. [Suspect]
     Active Substance: NIMODIPINE
     Indication: PRODUCT USED FOR UNKNOWN INDICATION
     Route: 065
     Dates: start: 2014
  3. DEPAKINE CHRONO [Suspect]
     Active Substance: VALPROATE SODIUM
     Route: 048
     Dates: start: 2014
  4. GAMMA-AMINOBUTYRIC ACID [Suspect]
     Active Substance: .GAMMA.-AMINOBUTYRIC ACID
     Indication: PRODUCT USED FOR UNKNOWN INDICATION
     Route: 065
     Dates: start: 201406
  5. DEPAKINE CHRONO [Suspect]
     Active Substance: VALPROATE SODIUM
     Route: 048
     Dates: start: 201309
  6. DEPAKINE CHRONO [Suspect]
     Active Substance: VALPROATE SODIUM
     Indication: EPILEPSY
     Route: 048
     Dates: start: 2013

REACTIONS (5)
  - Muscle spasms [Recovered/Resolved]
  - Weight increased [Not Recovered/Not Resolved]
  - Dyskinesia [Not Recovered/Not Resolved]
  - Epilepsy [Recovered/Resolved]
  - Fatigue [Not Recovered/Not Resolved]

NARRATIVE: CASE EVENT DATE: 2013
